FAERS Safety Report 5010054-X (Version None)
Quarter: 2006Q2

REPORT INFORMATION
  Report Type: 
  Country: None (occurrence: None)
  Receive Date: 20060523
  Receipt Date: 20060510
  Transmission Date: 20061013
  Serious: Yes (Death, Other)
  Sender: FDA-Public Use
  Company Number: 2006062806

PATIENT
  Age: 54 Year
  Sex: Female

DRUGS (1)
  1. GEODON [Suspect]
     Indication: PSYCHOTIC DISORDER
     Dosage: 120 MG (DAILY), ORAL
     Route: 048

REACTIONS (7)
  - CARDIAC ARREST [None]
  - DYSPHORIA [None]
  - ELECTROCARDIOGRAM QT PROLONGED [None]
  - SOMATOFORM DISORDER [None]
  - SUDDEN DEATH [None]
  - TACHYCARDIA [None]
  - WEIGHT INCREASED [None]
